FAERS Safety Report 19322575 (Version 1)
Quarter: 2021Q2

REPORT INFORMATION
  Report Type: Spontaneous
  Country: US (occurrence: US)
  Receive Date: 20210527
  Receipt Date: 20210527
  Transmission Date: 20210717
  Serious: No
  Sender: FDA-Public Use
  Company Number: US-EVOLUS, INC.-2021EV000100

PATIENT
  Age: 50 Year
  Sex: Female
  Weight: 64.47 kg

DRUGS (1)
  1. JEUVEAU [Suspect]
     Active Substance: PRABOTULINUMTOXINA-XVFS
     Indication: PRODUCT USED FOR UNKNOWN INDICATION
     Dates: start: 202011

REACTIONS (4)
  - Patient dissatisfaction with treatment [Unknown]
  - Injection site bruising [Recovered/Resolved]
  - Off label use [Unknown]
  - Injection site mass [Not Recovered/Not Resolved]

NARRATIVE: CASE EVENT DATE: 202011
